FAERS Safety Report 13753091 (Version 2)
Quarter: 2017Q3

REPORT INFORMATION
  Report Type: Spontaneous
  Country: GR (occurrence: GR)
  Receive Date: 20170714
  Receipt Date: 20170802
  Transmission Date: 20171127
  Serious: Yes (Death, Hospitalization, Disabling, Other)
  Sender: FDA-Public Use
  Company Number: GR-GLAXOSMITHKLINE-GR2017GSK107573

PATIENT
  Age: 92 Year
  Sex: Female
  Weight: 52 kg

DRUGS (6)
  1. ELIQUIS [Concomitant]
     Active Substance: APIXABAN
     Dosage: 2.5 MG, UNK
  2. LASIX [Concomitant]
     Active Substance: FUROSEMIDE
     Dosage: 40 MG, UNK
  3. VOLTAREN FORTE [Suspect]
     Active Substance: DICLOFENAC SODIUM
     Indication: MUSCULOSKELETAL PAIN
     Dosage: UNK (DRUG TOOK ONCE)
     Route: 003
     Dates: start: 201703, end: 201703
  4. ANGORON [Concomitant]
     Active Substance: AMIODARONE HYDROCHLORIDE
  5. CARVEPEN [Concomitant]
     Active Substance: CARVEDILOL
     Dosage: 6.25 MG, UNK
  6. T4 [Concomitant]
     Active Substance: LEVOTHYROXINE
     Dosage: 100 UG, UNK

REACTIONS (5)
  - Cardiac arrest [Fatal]
  - Death [Fatal]
  - Skin discolouration [Unknown]
  - Dermatitis [Fatal]
  - Pain [Unknown]

NARRATIVE: CASE EVENT DATE: 201703
